FAERS Safety Report 4888800-5 (Version None)
Quarter: 2006Q1

REPORT INFORMATION
  Report Type: 
  Country: None (occurrence: None)
  Receive Date: 20060123
  Receipt Date: 20051005
  Transmission Date: 20060701
  Serious: Yes (Other)
  Sender: FDA-Public Use
  Company Number: US-MERCK-0510USA05591

PATIENT
  Age: 77 Year
  Sex: Female
  Weight: 73 kg

DRUGS (3)
  1. VIOXX [Suspect]
     Indication: ARTHRITIS
     Route: 048
     Dates: start: 19990101, end: 20040901
  2. COZAAR [Concomitant]
     Route: 048
  3. DETROL [Concomitant]
     Route: 065

REACTIONS (4)
  - ARTHROPATHY [None]
  - DEPRESSION [None]
  - ISCHAEMIC STROKE [None]
  - SHOULDER PAIN [None]
